FAERS Safety Report 12409552 (Version 1)
Quarter: 2016Q2

REPORT INFORMATION
  Report Type: Report from Study
  Country: CO (occurrence: CO)
  Receive Date: 20160526
  Receipt Date: 20160526
  Transmission Date: 20160815
  Serious: Yes (Death, Hospitalization)
  Sender: FDA-Public Use
  Company Number: CO-ABBVIE-16P-036-1637187-00

PATIENT
  Age: 73 Year
  Sex: Male
  Weight: 62 kg

DRUGS (1)
  1. ZEMPLAR [Suspect]
     Active Substance: PARICALCITOL
     Indication: HYPERPARATHYROIDISM SECONDARY
     Dosage: POST DIALYSIS
     Route: 042
     Dates: start: 20151029, end: 20160227

REACTIONS (9)
  - Respiratory failure [Fatal]
  - Dyspnoea [Fatal]
  - Hyperhidrosis [Fatal]
  - Somnolence [Fatal]
  - Balance disorder [Fatal]
  - Generalised oedema [Fatal]
  - Cardio-respiratory arrest [Fatal]
  - Pulmonary oedema [Fatal]
  - Pneumonia [Fatal]

NARRATIVE: CASE EVENT DATE: 20160502
